FAERS Safety Report 9685996 (Version 1)
Quarter: 2013Q4

REPORT INFORMATION
  Report Type: Spontaneous
  Country: US (occurrence: US)
  Receive Date: 20131113
  Receipt Date: 20131113
  Transmission Date: 20140711
  Serious: No
  Sender: FDA-Public Use
  Company Number: US-ALLERGAN-1304491US

PATIENT
  Age: 63 Year
  Sex: Female

DRUGS (3)
  1. COMBIGAN[R] [Suspect]
     Indication: GLAUCOMA
     Dosage: 2 GTT, QHS
     Route: 047
     Dates: start: 201303
  2. COMBIGAN[R] [Suspect]
     Dosage: UNK UNK, QHS
  3. LUMIGAN 0.01% [Concomitant]
     Indication: GLAUCOMA

REACTIONS (4)
  - Dizziness [Recovered/Resolved]
  - Dizziness [Recovered/Resolved]
  - Scleral hyperaemia [Unknown]
  - Dry eye [Unknown]
